FAERS Safety Report 9898215 (Version 2)
Quarter: 2014Q1

REPORT INFORMATION
  Report Type: Spontaneous
  Country: US (occurrence: US)
  Receive Date: 20140214
  Receipt Date: 20140214
  Transmission Date: 20141002
  Serious: No
  Sender: FDA-Public Use
  Company Number: US-GILEAD-2011-0041497

PATIENT
  Sex: Female

DRUGS (6)
  1. LETAIRIS [Suspect]
     Indication: PULMONARY HYPERTENSION
     Route: 048
     Dates: start: 20080123
  2. LETAIRIS [Suspect]
     Indication: ANTINUCLEAR ANTIBODY POSITIVE
  3. LETAIRIS [Suspect]
     Indication: CARDIAC VALVE DISEASE
  4. LETAIRIS [Suspect]
     Indication: SLEEP APNOEA SYNDROME
  5. LOVENOX [Concomitant]
  6. SENSIPAR [Concomitant]

REACTIONS (2)
  - Hypotension [Unknown]
  - Oedema [Recovered/Resolved]
